FAERS Safety Report 20658944 (Version 1)
Quarter: 2022Q1

REPORT INFORMATION
  Report Type: Spontaneous
  Country: RU (occurrence: RU)
  Receive Date: 20220331
  Receipt Date: 20220331
  Transmission Date: 20220423
  Serious: Yes (Other)
  Sender: FDA-Public Use
  Company Number: RU-TEVA-2022-RU-2022012

PATIENT
  Age: 43 Year
  Sex: Male

DRUGS (2)
  1. CARBAMAZEPINE [Suspect]
     Active Substance: CARBAMAZEPINE
     Route: 065
  2. CARBAMAZEPINE [Suspect]
     Active Substance: CARBAMAZEPINE
     Dosage: 200 MILLIGRAM DAILY;

REACTIONS (7)
  - Loss of consciousness [Unknown]
  - Epilepsy [Unknown]
  - Drug ineffective [Unknown]
  - Malaise [Unknown]
  - Skin wound [Unknown]
  - Contusion [Unknown]
  - Fall [Unknown]
